FAERS Safety Report 5470888-4 (Version None)
Quarter: 2007Q3

REPORT INFORMATION
  Report Type: 
  Country: None (occurrence: None)
  Receive Date: 20070928
  Receipt Date: 20070806
  Transmission Date: 20080115
  Serious: Yes (Death, Hospitalization)
  Sender: FDA-Public Use
  Company Number: FR-BRISTOL-MYERS SQUIBB COMPANY-13920954

PATIENT
  Age: 42 Year
  Sex: Female

DRUGS (6)
  1. ENDOXAN [Suspect]
     Indication: B-CELL LYMPHOMA STAGE IV
     Dates: start: 20070111, end: 20070111
  2. DOXORUBICIN HCL [Suspect]
     Indication: B-CELL LYMPHOMA STAGE IV
     Dates: start: 20070111, end: 20070111
  3. VINCRISTINE [Suspect]
     Indication: B-CELL LYMPHOMA STAGE IV
     Dates: start: 20070111, end: 20070111
  4. PREDNISONE [Concomitant]
     Dates: start: 20070117, end: 20070121
  5. PROFENID [Concomitant]
  6. OXYCONTIN [Concomitant]

REACTIONS (2)
  - NEUTROPENIA [None]
  - SEPTIC SHOCK [None]
